FAERS Safety Report 5304248-3 (Version None)
Quarter: 2007Q2

REPORT INFORMATION
  Report Type: 
  Country: None (occurrence: None)
  Receive Date: 20070423
  Receipt Date: 20070409
  Transmission Date: 20071010
  Serious: Yes (Hospitalization)
  Sender: FDA-Public Use
  Company Number: PHEH2007US04684

PATIENT
  Age: 46 Year
  Sex: Female

DRUGS (5)
  1. ZELNORM [Suspect]
     Dosage: 6 MG, BID
     Route: 048
     Dates: start: 20050501, end: 20070402
  2. COREG [Concomitant]
  3. DIOVAN [Concomitant]
  4. HYDRALAZINE HCL [Concomitant]
  5. ZOFRAN [Concomitant]

REACTIONS (5)
  - GAIT DISTURBANCE [None]
  - HEMIPARESIS [None]
  - HYPOAESTHESIA [None]
  - MUSCULAR WEAKNESS [None]
  - TRANSIENT ISCHAEMIC ATTACK [None]
